FAERS Safety Report 4850751-X (Version None)
Quarter: 2005Q4

REPORT INFORMATION
  Report Type: 
  Country: None (occurrence: None)
  Receive Date: 20051208
  Receipt Date: 20051208
  Transmission Date: 20060501
  Serious: Yes (Hospitalization)
  Sender: FDA-Public Use
  Company Number: None

PATIENT
  Age: 47 Year
  Sex: Female

DRUGS (3)
  1. BEXTRA [Suspect]
  2. IBUPROFEN [Suspect]
  3. ALEVE [Suspect]

REACTIONS (3)
  - BLOOD PRESSURE SYSTOLIC DECREASED [None]
  - GASTRIC ULCER HAEMORRHAGE [None]
  - VOMITING [None]
